FAERS Safety Report 8379650-6 (Version None)
Quarter: 2012Q2

REPORT INFORMATION
  Report Type: 
  Country: None (occurrence: None)
  Receive Date: 20120523
  Receipt Date: 20120516
  Transmission Date: 20120825
  Serious: Yes (Other)
  Sender: FDA-Public Use
  Company Number: US-BAYER-2012-049613

PATIENT
  Age: 29 Year
  Sex: Female

DRUGS (4)
  1. YAZ [Suspect]
     Dosage: UNK
  2. VITAMIN TAB [Concomitant]
     Dosage: UNK
     Route: 048
  3. YASMIN [Suspect]
  4. DROSPIRENONE AND ETHINYL ESTRADIOL [Suspect]

REACTIONS (2)
  - DEEP VEIN THROMBOSIS [None]
  - PULMONARY EMBOLISM [None]
